FAERS Safety Report 6354184-9 (Version None)
Quarter: 2009Q3

REPORT INFORMATION
  Report Type: 
  Country: None (occurrence: None)
  Receive Date: 20090909
  Receipt Date: 20090825
  Transmission Date: 20100115
  Serious: No
  Sender: FDA-Public Use
  Company Number: SPI200900283

PATIENT
  Sex: Male

DRUGS (2)
  1. AMITIZA [Suspect]
     Indication: CONSTIPATION
     Dosage: 24 MCG, QD, ORAL
     Route: 048
     Dates: start: 20090819
  2. STOOL SOFTENER (DOCUSATE SODIUM) [Concomitant]

REACTIONS (5)
  - ABDOMINAL PAIN UPPER [None]
  - CHEST DISCOMFORT [None]
  - FATIGUE [None]
  - HYPERHIDROSIS [None]
  - NAUSEA [None]
